FAERS Safety Report 6972301-4 (Version None)
Quarter: 2010Q3

REPORT INFORMATION
  Report Type: 
  Country: None (occurrence: None)
  Receive Date: 20100909
  Receipt Date: 20100826
  Transmission Date: 20110219
  Serious: Yes (Other)
  Sender: FDA-Public Use
  Company Number: PHHY2010SE56487

PATIENT
  Sex: Male

DRUGS (2)
  1. VOLTARENE 0,1% (NVO) [Suspect]
     Indication: MACULAR OEDEMA
     Dosage: 1 MG, ONE DROP IN THE MORNING AND ONE IN THE EVENING IN LEFT EYE, FOR APPROXIMATELY SIX MONTHS
  2. ANTIHYPERTENSIVE DRUGS [Concomitant]
     Dosage: UNK,UNK

REACTIONS (6)
  - CORNEAL DISORDER [None]
  - CORNEAL OPACITY [None]
  - EYE PAIN [None]
  - INJURY CORNEAL [None]
  - VISION BLURRED [None]
  - VISUAL ACUITY REDUCED [None]
